FAERS Safety Report 11577976 (Version 1)
Quarter: 2015Q3

REPORT INFORMATION
  Report Type: Spontaneous
  Country: DE (occurrence: DE)
  Receive Date: 20150930
  Receipt Date: 20150930
  Transmission Date: 20151125
  Serious: Yes (Other)
  Sender: FDA-Public Use
  Company Number: DE-NOVOPROD-460885

PATIENT
  Sex: Male

DRUGS (1)
  1. GLUCAGEN HYPOKIT [Suspect]
     Active Substance: GLUCAGON HYDROCHLORIDE
     Indication: HYPOGLYCAEMIA
     Dosage: UNK
     Route: 065

REACTIONS (2)
  - Drug administration error [Recovered/Resolved]
  - Hypoglycaemia [Recovered/Resolved]
